FAERS Safety Report 18986908 (Version 1)
Quarter: 2021Q1

REPORT INFORMATION
  Report Type: Spontaneous
  Country: US (occurrence: US)
  Receive Date: 20210308
  Receipt Date: 20210308
  Transmission Date: 20210420
  Serious: No
  Sender: FDA-Public Use
  Company Number: None

PATIENT
  Age: 35 Year
  Sex: Male
  Weight: 183 kg

DRUGS (1)
  1. GADOTERIDOL (GADOTERIDOL 279.3MG/ML INJ) [Suspect]
     Active Substance: GADOTERIDOL
     Indication: ATRIAL FIBRILLATION
     Route: 042
     Dates: start: 20210112, end: 20210112

REACTIONS (6)
  - Angioedema [None]
  - Rash [None]
  - Cough [None]
  - Erythema multiforme [None]
  - Wheezing [None]
  - Anaphylactic reaction [None]

NARRATIVE: CASE EVENT DATE: 20210112
